APPROVED DRUG PRODUCT: LANORINAL
Active Ingredient: ASPIRIN; BUTALBITAL; CAFFEINE
Strength: 325MG;50MG;40MG
Dosage Form/Route: CAPSULE;ORAL
Application: A086996 | Product #002 | TE Code: AA
Applicant: SANDOZ INC
Approved: Oct 11, 1985 | RLD: No | RS: Yes | Type: RX